FAERS Safety Report 10948613 (Version 1)
Quarter: 2015Q1

REPORT INFORMATION
  Report Type: Spontaneous
  Country: US (occurrence: None)
  Receive Date: 20150323
  Receipt Date: 20150323
  Transmission Date: 20150721
  Serious: No
  Sender: FDA-Public Use
  Company Number: None

PATIENT
  Age: 59 Year
  Sex: Female
  Weight: 136.08 kg

DRUGS (35)
  1. LATUDA [Suspect]
     Active Substance: LURASIDONE HYDROCHLORIDE
     Indication: MAJOR DEPRESSION
     Route: 048
  2. ZALEPLON. [Concomitant]
     Active Substance: ZALEPLON
  3. PATANOL 0.1% OPHTALMIC SOLUTION [Concomitant]
  4. SIMVASTATIN. [Concomitant]
     Active Substance: SIMVASTATIN
  5. LISINOPRIL. [Concomitant]
     Active Substance: LISINOPRIL
  6. FLONASE [Concomitant]
     Active Substance: FLUTICASONE PROPIONATE
  7. FUROSEMIDE. [Concomitant]
     Active Substance: FUROSEMIDE
  8. LUBIPROSTONE [Concomitant]
     Active Substance: LUBIPROSTONE
  9. CENTRUM [Concomitant]
     Active Substance: VITAMINS
  10. D2000 [Concomitant]
  11. FEXOFENADINE [Concomitant]
     Active Substance: FEXOFENADINE\FEXOFENADINE HYDROCHLORIDE
  12. PROVENTIL HFA [Concomitant]
     Active Substance: ALBUTEROL SULFATE
  13. GLIMEPIRIDE. [Concomitant]
     Active Substance: GLIMEPIRIDE
  14. IMITREX STATDOSE REFILL [Concomitant]
  15. BOTOX [Concomitant]
     Active Substance: ONABOTULINUMTOXINA
  16. ACETIC ACID 2% OTIC SOLUTION [Concomitant]
  17. NAPROXEN. [Concomitant]
     Active Substance: NAPROXEN
  18. PROTONIX [Concomitant]
     Active Substance: PANTOPRAZOLE SODIUM
  19. BYETTA PREFILLED PEN [Concomitant]
  20. ORPHENADRINE [Concomitant]
     Active Substance: ORPHENADRINE
  21. GABAPENTIN. [Concomitant]
     Active Substance: GABAPENTIN
  22. VIIBRYD [Concomitant]
     Active Substance: VILAZODONE HYDROCHLORIDE
  23. NORTRIPTYLINE [Concomitant]
     Active Substance: NORTRIPTYLINE
  24. VICODIN [Concomitant]
     Active Substance: ACETAMINOPHEN\HYDROCODONE BITARTRATE
  25. MIRAPEX [Concomitant]
     Active Substance: PRAMIPEXOLE DIHYDROCHLORIDE
  26. SEROQUEL XR [Concomitant]
     Active Substance: QUETIAPINE FUMARATE
  27. LEVOTHYROXINE [Concomitant]
     Active Substance: LEVOTHYROXINE
  28. LATUDA [Concomitant]
     Active Substance: LURASIDONE HYDROCHLORIDE
  29. ZOLMITRIPTAN. [Concomitant]
     Active Substance: ZOLMITRIPTAN
  30. VITAMIN C [Concomitant]
     Active Substance: ASCORBIC ACID
  31. POTASSIUM GLUCONATE [Concomitant]
     Active Substance: POTASSIUM GLUCONATE
  32. METFORMIN [Concomitant]
     Active Substance: METFORMIN HYDROCHLORIDE
  33. ASPIR B1 [Concomitant]
  34. CLOBETASOL [Concomitant]
     Active Substance: CLOBETASOL
  35. CITRUCEL [Concomitant]
     Active Substance: METHYLCELLULOSE (4000 MPA.S)

REACTIONS (2)
  - Dyskinesia [None]
  - Tremor [None]

NARRATIVE: CASE EVENT DATE: 20150301
